FAERS Safety Report 25922283 (Version 1)
Quarter: 2025Q4

REPORT INFORMATION
  Report Type: Spontaneous
  Country: US (occurrence: US)
  Receive Date: 20251015
  Receipt Date: 20251015
  Transmission Date: 20260119
  Serious: Yes (Hospitalization, Other)
  Sender: APPCO PHARMA LLC
  Company Number: US-Appco Pharma LLC-2186608

PATIENT
  Sex: Female
  Weight: 72.727 kg

DRUGS (2)
  1. HYDROXYCHLOROQUINE SULFATE [Suspect]
     Active Substance: HYDROXYCHLOROQUINE SULFATE
     Indication: Sjogren^s syndrome
     Dates: start: 20250803, end: 20250810
  2. TYLENOL [Concomitant]
     Active Substance: ACETAMINOPHEN

REACTIONS (9)
  - Vitreous floaters [Not Recovered/Not Resolved]
  - Off label use [Unknown]
  - Gait disturbance [Not Recovered/Not Resolved]
  - Limb discomfort [Not Recovered/Not Resolved]
  - Sensory disturbance [Not Recovered/Not Resolved]
  - Muscle contractions involuntary [Not Recovered/Not Resolved]
  - Muscle spasms [Not Recovered/Not Resolved]
  - General physical health deterioration [Not Recovered/Not Resolved]
  - Paraesthesia [Not Recovered/Not Resolved]
